FAERS Safety Report 23687589 (Version 1)
Quarter: 2024Q1

REPORT INFORMATION
  Report Type: Spontaneous
  Country: US (occurrence: None)
  Receive Date: 20240328
  Receipt Date: 20240328
  Transmission Date: 20240410
  Serious: Yes (Other)
  Sender: FDA-Public Use
  Company Number: None

PATIENT
  Age: 63 Year
  Sex: Female

DRUGS (1)
  1. NITROFURANTOIN MONOHYDRATE MACROCRYSTALS [Suspect]
     Active Substance: NITROFURANTOIN\NITROFURANTOIN MONOHYDRATE
     Dosage: FREQUENCY : TWICE A DAY;?
     Route: 048
     Dates: start: 20240315

REACTIONS (2)
  - Atrial fibrillation [None]
  - Anxiety [None]

NARRATIVE: CASE EVENT DATE: 20240315
